FAERS Safety Report 21881117 (Version 1)
Quarter: 2023Q1

REPORT INFORMATION
  Report Type: Report from Study
  Country: CA (occurrence: CA)
  Receive Date: 20230118
  Receipt Date: 20230118
  Transmission Date: 20230417
  Serious: Yes (Other)
  Sender: FDA-Public Use
  Company Number: CA-ABBVIE-4127217

PATIENT
  Sex: Female

DRUGS (1)
  1. HUMIRA [Suspect]
     Active Substance: ADALIMUMAB
     Indication: Colitis ulcerative
     Route: 058
     Dates: start: 20121207

REACTIONS (5)
  - Metastases to bone [Unknown]
  - Inflammatory bowel disease [Unknown]
  - Breast cancer [Unknown]
  - Sacroiliitis [Unknown]
  - Arthropathy [Unknown]
